FAERS Safety Report 16095338 (Version 7)
Quarter: 2020Q2

REPORT INFORMATION
  Report Type: Other
  Country: CA (occurrence: CA)
  Receive Date: 20190320
  Receipt Date: 20200617
  Transmission Date: 20200713
  Serious: Yes (Other)
  Sender: FDA-Public Use
  Company Number: CA-BECTON DICKINSON-2019BDN00115

PATIENT
  Age: 40 Year
  Sex: Female
  Weight: 68 kg

DRUGS (11)
  1. CHLORHEXIDINE GLUCONATE ORAL RINSE [Suspect]
     Active Substance: CHLORHEXIDINE GLUCONATE
  2. RITUXAN [Suspect]
     Active Substance: RITUXIMAB
     Dosage: UNK, 2X/MONTH (1 EVERY 15 DAYS)
     Route: 042
  3. CELEBREX [Concomitant]
     Active Substance: CELECOXIB
  4. CHLORAPREP [Suspect]
     Active Substance: CHLORHEXIDINE GLUCONATE\ISOPROPYL ALCOHOL
     Route: 061
  5. RITUXAN [Suspect]
     Active Substance: RITUXIMAB
     Indication: RHEUMATOID ARTHRITIS
     Dosage: 1000 MG
     Route: 042
  6. ACETAMINOPHEN. [Concomitant]
     Active Substance: ACETAMINOPHEN
     Dosage: 650 MG
     Route: 048
  7. DIPHENHYDRAMINE HYDROCHLORIDE. [Concomitant]
     Active Substance: DIPHENHYDRAMINE HYDROCHLORIDE
  8. DIPHENHYDRAMINE HYDROCHLORIDE. [Concomitant]
     Active Substance: DIPHENHYDRAMINE HYDROCHLORIDE
     Dosage: 50 MG
     Route: 048
  9. METHYLPREDNISOLONE. [Concomitant]
     Active Substance: METHYLPREDNISOLONE
     Dosage: 100 MG
     Route: 042
  10. METHOTREXATE. [Suspect]
     Active Substance: METHOTREXATE
     Dosage: 1 DOSAGE UNITS, 1X/WEEK
  11. FOLIC ACID. [Concomitant]
     Active Substance: FOLIC ACID

REACTIONS (10)
  - Nasopharyngitis [Unknown]
  - Pruritus [Unknown]
  - Infusion related reaction [Unknown]
  - Menstruation irregular [Unknown]
  - Skin infection [Unknown]
  - Drug ineffective [Unknown]
  - Erythema [Unknown]
  - Arthralgia [Unknown]
  - Hot flush [Unknown]
  - Headache [Unknown]
